FAERS Safety Report 11694425 (Version 2)
Quarter: 2015Q4

REPORT INFORMATION
  Report Type: Spontaneous
  Country: AR (occurrence: AR)
  Receive Date: 20151103
  Receipt Date: 20151123
  Transmission Date: 20160304
  Serious: Yes (Hospitalization, Other)
  Sender: FDA-Public Use
  Company Number: AR-JNJFOC-20151101022

PATIENT
  Sex: Female
  Weight: 95 kg

DRUGS (3)
  1. SULFADIAZINE. [Concomitant]
     Active Substance: SULFADIAZINE
     Route: 065
  2. SIMPONI [Suspect]
     Active Substance: GOLIMUMAB
     Indication: RHEUMATOID ARTHRITIS
     Route: 058
     Dates: start: 20150509
  3. PENICILLIN NOS [Concomitant]
     Active Substance: PENICILLIN
     Route: 065

REACTIONS (1)
  - Erysipelas [Not Recovered/Not Resolved]
